FAERS Safety Report 7720329-9 (Version None)
Quarter: 2011Q3

REPORT INFORMATION
  Report Type: 
  Country: None (occurrence: None)
  Receive Date: 20110831
  Receipt Date: 20110825
  Transmission Date: 20111222
  Serious: Yes (Other)
  Sender: FDA-Public Use
  Company Number: US-PFIZER INC-2011176790

PATIENT
  Sex: Female
  Weight: 68 kg

DRUGS (2)
  1. LYRICA [Suspect]
     Dosage: 50 MG, ALTERNATE DAY
     Route: 048
     Dates: start: 20110101, end: 20110101
  2. LYRICA [Suspect]
     Indication: FIBROMYALGIA
     Dosage: 50 MG, 1X/DAY BEFORE BEDTIME
     Route: 048
     Dates: start: 20101201, end: 20110101

REACTIONS (3)
  - DISTURBANCE IN ATTENTION [None]
  - MEMORY IMPAIRMENT [None]
  - FIBROMYALGIA [None]
